FAERS Safety Report 5104137-3 (Version None)
Quarter: 2006Q3

REPORT INFORMATION
  Report Type: 
  Country: None (occurrence: None)
  Receive Date: 20060911
  Receipt Date: 20060825
  Transmission Date: 20061208
  Serious: Yes (Death)
  Sender: FDA-Public Use
  Company Number: 229409

PATIENT
  Age: 66 Year
  Sex: Male

DRUGS (3)
  1. TENECTEPLASE [Suspect]
     Indication: CARDIAC ARREST
     Dosage: 45 MG, SINGLE, IV BOLUS
     Route: 040
     Dates: start: 20051208, end: 20051208
  2. ACENOCOUMAROL               (ACENOCOUMAROL) [Concomitant]
  3. SOTALOL HYDROCHLORIDE [Concomitant]

REACTIONS (2)
  - ELECTROMECHANICAL DISSOCIATION [None]
  - PULMONARY EMBOLISM [None]
